FAERS Safety Report 7921719-1 (Version None)
Quarter: 2011Q4

REPORT INFORMATION
  Report Type: 
  Country: None (occurrence: None)
  Receive Date: 20111117
  Receipt Date: 20111110
  Transmission Date: 20120403
  Serious: Yes (Death)
  Sender: FDA-Public Use
  Company Number: US-GLAXOSMITHKLINE-A0948898A

PATIENT
  Sex: Male

DRUGS (16)
  1. ROPINIROLE HYDROCHLORIDE [Concomitant]
     Dosage: 1MG TWICE PER DAY
     Route: 048
  2. METOPROLOL TARTRATE [Concomitant]
     Dosage: 25MG TWICE PER DAY
     Route: 048
  3. CITALOPRAM HYDROBROMIDE [Concomitant]
     Dosage: 10MG PER DAY
     Route: 048
  4. HYDROCHLOROTHIAZIDE [Concomitant]
     Dosage: 12.5MG AS DIRECTED
     Route: 048
  5. PROMACTA [Suspect]
     Indication: IDIOPATHIC THROMBOCYTOPENIC PURPURA
     Dosage: 75MG PER DAY
     Dates: start: 20110831
  6. PREDNISONE TAB [Concomitant]
     Indication: IDIOPATHIC THROMBOCYTOPENIC PURPURA
     Dates: start: 20110208
  7. LACTULOSE [Concomitant]
     Route: 048
  8. LEVETIRACETAM [Concomitant]
     Dosage: 500MG TWICE PER DAY
     Route: 048
  9. LISINOPRIL [Concomitant]
     Dosage: 10MG PER DAY
     Route: 048
  10. NORVASC [Concomitant]
     Dosage: 10MG PER DAY
     Route: 048
  11. BUSPIRONE HCL [Concomitant]
     Dosage: 5MG PER DAY
     Route: 048
  12. LANTUS [Concomitant]
     Dosage: 42UNIT AT NIGHT
     Route: 058
  13. VICODIN [Concomitant]
     Indication: PAIN
     Dosage: 1TAB AS REQUIRED
     Route: 048
  14. OMEPRAZOLE [Concomitant]
     Dosage: 20MG TWICE PER DAY
     Route: 048
  15. ROBAXIN [Concomitant]
     Route: 048
  16. URSODIOL [Concomitant]
     Dosage: 300MG TWICE PER DAY
     Route: 048

REACTIONS (1)
  - CARDIAC ARREST [None]
